FAERS Safety Report 8596266-7 (Version None)
Quarter: 2012Q3

REPORT INFORMATION
  Report Type: 
  Country: None (occurrence: None)
  Receive Date: 20120815
  Receipt Date: 20120801
  Transmission Date: 20120928
  Serious: Yes (Other)
  Sender: FDA-Public Use
  Company Number: CA-WATSON-2012-13598

PATIENT
  Age: 53 Year
  Sex: Female
  Weight: 61 kg

DRUGS (1)
  1. GELNIQUE [Suspect]
     Indication: PRODUCT USED FOR UNKNOWN INDICATION
     Dosage: 10 %, DAILY
     Route: 061

REACTIONS (4)
  - DIARRHOEA [None]
  - ABDOMINAL PAIN LOWER [None]
  - PAIN IN EXTREMITY [None]
  - HYPERHIDROSIS [None]
